FAERS Safety Report 6049357-9 (Version None)
Quarter: 2009Q1

REPORT INFORMATION
  Report Type: 
  Country: None (occurrence: None)
  Receive Date: 20090123
  Receipt Date: 20090114
  Transmission Date: 20090719
  Serious: Yes (Hospitalization)
  Sender: FDA-Public Use
  Company Number: DE-PFIZER INC-2009155297

PATIENT

DRUGS (1)
  1. LYRICA [Suspect]
     Dosage: 6 G

REACTIONS (1)
  - OVERDOSE [None]
